FAERS Safety Report 5357302-4 (Version None)
Quarter: 2007Q2

REPORT INFORMATION
  Report Type: 
  Country: None (occurrence: None)
  Receive Date: 20070614
  Receipt Date: 20070605
  Transmission Date: 20071010
  Serious: Yes (Other)
  Sender: FDA-Public Use
  Company Number: CH-JNJFOC-20070503161

PATIENT
  Age: 45 Year
  Sex: Male

DRUGS (14)
  1. RISPERDAL [Suspect]
  2. RISPERDAL [Suspect]
     Indication: DRUG USE FOR UNKNOWN INDICATION
  3. ESCITALOPRAM OXALATE [Suspect]
     Route: 048
  4. ESCITALOPRAM OXALATE [Suspect]
     Route: 048
  5. ESCITALOPRAM OXALATE [Suspect]
     Indication: DRUG USE FOR UNKNOWN INDICATION
     Route: 048
  6. DIPIPERON [Concomitant]
     Route: 048
  7. DIPIPERON [Concomitant]
     Route: 048
  8. GLUCOPHAGE [Concomitant]
     Route: 048
  9. GLUCOPHAGE [Concomitant]
     Route: 048
  10. GLUCOPHAGE [Concomitant]
     Indication: DIABETES MELLITUS
     Route: 048
  11. BRUFEN [Concomitant]
     Route: 048
  12. BRUFEN [Concomitant]
     Route: 048
  13. BRUFEN [Concomitant]
     Route: 048
  14. BRUFEN [Concomitant]
     Indication: ANALGESIC EFFECT
     Route: 048

REACTIONS (2)
  - LEUKOPENIA [None]
  - NEUTROPENIA [None]
